FAERS Safety Report 7236510-1 (Version None)
Quarter: 2011Q1

REPORT INFORMATION
  Report Type: 
  Country: None (occurrence: None)
  Receive Date: 20110120
  Receipt Date: 20110114
  Transmission Date: 20110831
  Serious: Yes (Hospitalization, Other)
  Sender: FDA-Public Use
  Company Number: US-TEVA-256988USA

PATIENT
  Sex: Male
  Weight: 61 kg

DRUGS (12)
  1. FLUOROURACIL [Suspect]
     Indication: HEAD AND NECK CANCER
     Route: 042
     Dates: start: 20101101, end: 20101101
  2. TETRACYCLINE [Concomitant]
     Indication: ORAL PAIN
     Dosage: COCKTAIL: SWISH AND SWALLOW
     Route: 048
  3. HYDROCODONE W/HOMATROPINE [Concomitant]
     Indication: PAIN
     Dosage: 1.5/5
  4. SENNA ALEXANDRINA [Concomitant]
     Indication: CONSTIPATION
     Route: 048
  5. LIDOCAINE HYDROCHLORIDE IN PLASTIC CONTAINER [Concomitant]
     Indication: ORAL PAIN
     Dosage: COCKTAIL: SWISH AND SWALLOW
     Route: 048
  6. MACROGOL [Concomitant]
     Indication: CONSTIPATION
     Route: 048
  7. NYSTATIN [Concomitant]
     Indication: ORAL PAIN
     Dosage: COCKTAIL: SWISH AND SWALLOW
     Route: 048
  8. CISPLATIN [Suspect]
     Indication: HEAD AND NECK CANCER
     Route: 042
     Dates: start: 20101101, end: 20101101
  9. DOCUSATE SODIUM [Concomitant]
     Indication: CONSTIPATION
     Dosage: 2X/DAY AS NEEDED
  10. DIPHENHYDRAMINE [Concomitant]
     Indication: ORAL PAIN
     Dosage: COCKTAIL: SWISH AND SWALLOW
     Route: 048
  11. CETUXIMAB [Suspect]
     Indication: HEAD AND NECK CANCER
     Route: 042
     Dates: start: 20101108, end: 20101108
  12. ONDANSETRON [Concomitant]
     Indication: NAUSEA
     Route: 048

REACTIONS (2)
  - BLOOD CREATININE INCREASED [None]
  - MUCOSAL INFLAMMATION [None]
